FAERS Safety Report 14509519 (Version 1)
Quarter: 2018Q1

REPORT INFORMATION
  Report Type: Spontaneous
  Country: US (occurrence: US)
  Receive Date: 20180209
  Receipt Date: 20180209
  Transmission Date: 20180509
  Serious: No
  Sender: FDA-Public Use
  Company Number: US-TEVA-2018-US-846576

PATIENT
  Sex: Female

DRUGS (2)
  1. FAMOTIDINE. [Suspect]
     Active Substance: FAMOTIDINE
     Indication: VULVOVAGINAL BURNING SENSATION
     Dosage: TAKE TWO TABLETS
     Route: 065
  2. FAMOTIDINE. [Suspect]
     Active Substance: FAMOTIDINE
     Indication: ANORECTAL DISCOMFORT

REACTIONS (2)
  - Hypersensitivity [Unknown]
  - Drug prescribing error [Unknown]
